FAERS Safety Report 12076272 (Version 11)
Quarter: 2024Q3

REPORT INFORMATION
  Report Type: Report from Study
  Country: CA (occurrence: CA)
  Receive Date: 20160215
  Receipt Date: 20240821
  Transmission Date: 20241017
  Serious: Yes (Hospitalization)
  Sender: ROCHE
  Company Number: CA-ROCHE-1709689

PATIENT
  Age: 35 Year
  Sex: Male
  Weight: 72.0 kg

DRUGS (20)
  1. XOLAIR [Suspect]
     Active Substance: OMALIZUMAB
     Indication: Asthma
     Route: 058
     Dates: start: 20140904
  2. XOLAIR [Suspect]
     Active Substance: OMALIZUMAB
     Route: 058
     Dates: start: 20150708
  3. XOLAIR [Suspect]
     Active Substance: OMALIZUMAB
     Route: 058
     Dates: start: 20140904
  4. XOLAIR [Suspect]
     Active Substance: OMALIZUMAB
     Route: 058
  5. SYMBICORT [Concomitant]
     Active Substance: BUDESONIDE\FORMOTEROL FUMARATE DIHYDRATE
     Indication: Product used for unknown indication
     Dosage: UNK
     Route: 065
  6. SYMBICORT [Concomitant]
     Active Substance: BUDESONIDE\FORMOTEROL FUMARATE DIHYDRATE
     Dosage: UNK
     Route: 065
  7. ALVESCO [Concomitant]
     Active Substance: CICLESONIDE
     Indication: Product used for unknown indication
     Dosage: UNK
     Route: 065
  8. ALVESCO [Concomitant]
     Active Substance: CICLESONIDE
     Dosage: UNK
     Route: 065
  9. SINGULAIR [Concomitant]
     Active Substance: MONTELUKAST SODIUM
     Indication: Product used for unknown indication
     Dosage: UNK
     Route: 065
  10. SINGULAIR [Concomitant]
     Active Substance: MONTELUKAST SODIUM
     Dosage: UNK
     Route: 065
  11. SPIRIVA [Concomitant]
     Active Substance: TIOTROPIUM BROMIDE MONOHYDRATE
     Indication: Product used for unknown indication
     Dosage: 2 PUFFS IN THE MORNING
     Route: 065
  12. SPIRIVA [Concomitant]
     Active Substance: TIOTROPIUM BROMIDE MONOHYDRATE
     Dosage: 2 PUFFS IN THE MORNING
     Route: 065
  13. CORTISONE [Concomitant]
     Active Substance: CORTISONE
     Indication: Product used for unknown indication
     Dosage: UNK (STARTED DECREASING)
     Route: 065
  14. CORTISONE [Concomitant]
     Active Substance: CORTISONE
     Dosage: 50 MG
     Route: 065
  15. CORTISONE [Concomitant]
     Active Substance: CORTISONE
     Dosage: 25 MG
     Route: 065
  16. CORTISONE [Concomitant]
     Active Substance: CORTISONE
     Dosage: 12.5 MG
     Route: 065
  17. CORTISONE [Concomitant]
     Active Substance: CORTISONE
     Dosage: FOR 4 DAYS
     Route: 065
     Dates: start: 20150119
  18. CORTISONE [Concomitant]
     Active Substance: CORTISONE
     Dosage: FOR 6 DAYS
     Route: 065
  19. CORTISONE [Concomitant]
     Active Substance: CORTISONE
     Dosage: FOR 6 DAYS
     Route: 065
  20. CORTISONE [Concomitant]
     Active Substance: CORTISONE
     Dosage: STARTED DECREASING
     Route: 065

REACTIONS (18)
  - Anxiety [Unknown]
  - Influenza [Recovering/Resolving]
  - Blood pressure systolic increased [Unknown]
  - Throat clearing [Unknown]
  - Nasopharyngitis [Unknown]
  - Asthma [Unknown]
  - Wheezing [Recovered/Resolved]
  - Decreased activity [Unknown]
  - Product physical consistency issue [Unknown]
  - Incorrect dose administered [Unknown]
  - Middle insomnia [Unknown]
  - Product dose confusion [Unknown]
  - Product dispensing issue [Unknown]
  - Paranoia [Unknown]
  - Weight decreased [Unknown]
  - Respiratory rate increased [Unknown]
  - Heart rate increased [Unknown]
  - Drug ineffective [Unknown]

NARRATIVE: CASE EVENT DATE: 20141201
